FAERS Safety Report 19646843 (Version 1)
Quarter: 2021Q3

REPORT INFORMATION
  Report Type: Spontaneous
  Country: DE (occurrence: DE)
  Receive Date: 20210802
  Receipt Date: 20210802
  Transmission Date: 20211014
  Serious: Yes (Hospitalization)
  Sender: FDA-Public Use
  Company Number: NVSC2021DE165752

PATIENT
  Sex: Male

DRUGS (2)
  1. COSENTYX [Suspect]
     Active Substance: SECUKINUMAB
     Indication: AXIAL SPONDYLOARTHRITIS
     Dosage: 150 MG, EVERY 4 WEEKS
     Route: 065
     Dates: start: 20210508
  2. SULFASALAZINE. [Suspect]
     Active Substance: SULFASALAZINE
     Indication: AXIAL SPONDYLOARTHRITIS
     Dosage: 2000 MG, QD
     Route: 065
     Dates: start: 20190701, end: 20210209

REACTIONS (1)
  - Arthralgia [Unknown]
